FAERS Safety Report 18706163 (Version 2)
Quarter: 2021Q1

REPORT INFORMATION
  Report Type: Spontaneous
  Country: IT (occurrence: IT)
  Receive Date: 20210106
  Receipt Date: 20210115
  Transmission Date: 20210419
  Serious: Yes (Other)
  Sender: FDA-Public Use
  Company Number: IT-PFIZER INC-2020521714

PATIENT
  Age: 57 Year
  Sex: Male

DRUGS (5)
  1. CORTISONE ACETATE. [Concomitant]
     Active Substance: CORTISONE ACETATE
     Indication: HORMONE REPLACEMENT THERAPY
     Dosage: UNK
  2. DOXORUBICIN HCL [Suspect]
     Active Substance: DOXORUBICIN HYDROCHLORIDE
     Indication: HIGH GRADE B-CELL LYMPHOMA BURKITT-LIKE LYMPHOMA
     Dosage: UNK, CYCLIC (RECEIVED 3 CYCLES OF ADJUVANT CHEMOTHERAPY ACCORDING TO THE CHOP PROTOCOL)
  3. CYCLOPHOSPHAMIDE. [Suspect]
     Active Substance: CYCLOPHOSPHAMIDE
     Indication: HIGH GRADE B-CELL LYMPHOMA BURKITT-LIKE LYMPHOMA
     Dosage: UNK, CYCLIC (RECEIVED 3 CYCLES OF ADJUVANT CHEMOTHERAPY ACCORDING TO THE CHOP PROTOCOL)
  4. PREDNISOLONE. [Suspect]
     Active Substance: PREDNISOLONE
     Indication: HIGH GRADE B-CELL LYMPHOMA BURKITT-LIKE LYMPHOMA
     Dosage: UNK, CYCLIC (RECEIVED 3 CYCLES OF ADJUVANT CHEMOTHERAPY ACCORDING TO THE CHOP PROTOCOL)
  5. VINCRISTINE SULFATE. [Suspect]
     Active Substance: VINCRISTINE SULFATE
     Indication: HIGH GRADE B-CELL LYMPHOMA BURKITT-LIKE LYMPHOMA
     Dosage: UNK, CYCLIC (RECEIVED 3 CYCLES OF ADJUVANT CHEMOTHERAPY ACCORDING TO THE CHOP PROTOCOL)

REACTIONS (1)
  - Renal failure [Unknown]
